FAERS Safety Report 6997725-0 (Version None)
Quarter: 2010Q3

REPORT INFORMATION
  Report Type: 
  Country: None (occurrence: None)
  Receive Date: 20100918
  Receipt Date: 20091125
  Transmission Date: 20110219
  Serious: No
  Sender: FDA-Public Use
  Company Number: US-WYE-H12422909

PATIENT
  Sex: Female
  Weight: 81.72 kg

DRUGS (13)
  1. PRISTIQ [Suspect]
     Indication: DEPRESSION
     Route: 048
     Dates: start: 20090101, end: 20091125
  2. FIORICET [Concomitant]
  3. ATENOLOL [Concomitant]
  4. CELEBREX [Concomitant]
  5. BENTYL [Concomitant]
  6. PROVERA [Concomitant]
  7. TOPAMAX [Concomitant]
  8. FLEXERIL [Concomitant]
  9. KLONOPIN [Concomitant]
  10. PROTONIX [Concomitant]
  11. PREMARIN [Concomitant]
  12. TRAMADOL [Concomitant]
  13. FOSAMAX [Concomitant]

REACTIONS (14)
  - BLOOD CHOLESTEROL INCREASED [None]
  - BLOOD PRESSURE INCREASED [None]
  - BLOOD TRIGLYCERIDES INCREASED [None]
  - DEPRESSION [None]
  - DIARRHOEA [None]
  - FUNGAL INFECTION [None]
  - HEADACHE [None]
  - HOT FLUSH [None]
  - HYPERHIDROSIS [None]
  - INSOMNIA [None]
  - LOSS OF LIBIDO [None]
  - MOOD ALTERED [None]
  - NAUSEA [None]
  - PANIC ATTACK [None]
